FAERS Safety Report 21998177 (Version 1)
Quarter: 2023Q1

REPORT INFORMATION
  Report Type: Spontaneous
  Country: US (occurrence: US)
  Receive Date: 20230216
  Receipt Date: 20230216
  Transmission Date: 20230418
  Serious: Yes (Other)
  Sender: FDA-Public Use
  Company Number: US-drreddys-LIT/USA/23/0161392

PATIENT
  Age: 8 Year
  Sex: Male

DRUGS (1)
  1. MERCAPTOPURINE [Suspect]
     Active Substance: MERCAPTOPURINE
     Indication: B-cell type acute leukaemia
     Dosage: SURGING DOSES

REACTIONS (3)
  - Hepatotoxicity [Unknown]
  - Hypoglycaemia [Recovered/Resolved]
  - Upper respiratory tract infection [Unknown]
